FAERS Safety Report 13702976 (Version 1)
Quarter: 2017Q2

REPORT INFORMATION
  Report Type: Spontaneous
  Country: ES (occurrence: ES)
  Receive Date: 20170629
  Receipt Date: 20170629
  Transmission Date: 20170830
  Serious: Yes (Other)
  Sender: FDA-Public Use
  Company Number: ES-ASTRAZENECA-2017SE65343

PATIENT
  Age: 63 Year
  Sex: Female

DRUGS (4)
  1. DAPAGLIFLOZIN [Suspect]
     Active Substance: DAPAGLIFLOZIN
     Indication: TYPE 2 DIABETES MELLITUS
     Route: 048
     Dates: start: 2016
  2. ADIRO [Concomitant]
     Active Substance: ASPIRIN
     Indication: CARDIAC ARREST
     Dates: start: 201611
  3. BRILIQUE [Concomitant]
     Active Substance: TICAGRELOR
     Indication: CARDIAC ARREST
     Route: 048
     Dates: start: 201611
  4. INSULIN [Concomitant]
     Active Substance: INSULIN NOS
     Indication: TYPE 2 DIABETES MELLITUS

REACTIONS (4)
  - Dysphagia [Unknown]
  - Urticaria [Unknown]
  - Cardiac arrest [Unknown]
  - Pain [Unknown]

NARRATIVE: CASE EVENT DATE: 2016
